FAERS Safety Report 9115323 (Version 2)
Quarter: 2013Q1

REPORT INFORMATION
  Report Type: Spontaneous
  Country: CO (occurrence: CO)
  Receive Date: 20130225
  Receipt Date: 20130227
  Transmission Date: 20140127
  Serious: Yes (Death, Hospitalization)
  Sender: FDA-Public Use
  Company Number: PHHY2013CO017443

PATIENT
  Age: 66 Year
  Sex: Female

DRUGS (1)
  1. AFINITOR [Suspect]
     Indication: BREAST CANCER
     Dosage: 10 MG, DAILY
     Route: 048
     Dates: start: 20121229, end: 20130208

REACTIONS (2)
  - Chest pain [Fatal]
  - Abdominal pain upper [Unknown]
